FAERS Safety Report 17760509 (Version 3)
Quarter: 2020Q2

REPORT INFORMATION
  Report Type: Spontaneous
  Country: DE (occurrence: DE)
  Receive Date: 20200508
  Receipt Date: 20200529
  Transmission Date: 20200714
  Serious: Yes (Death, Congenital Anomaly, Other)
  Sender: FDA-Public Use
  Company Number: NVSC2020DE124844

PATIENT

DRUGS (2)
  1. LOSARTAN POTASSIUM. [Suspect]
     Active Substance: LOSARTAN POTASSIUM
     Indication: FOETAL EXPOSURE DURING PREGNANCY
     Dosage: MATERNAL DOSE: UNKNOWN
     Route: 064
  2. VALSARTAN. [Suspect]
     Active Substance: VALSARTAN
     Indication: FOETAL EXPOSURE DURING PREGNANCY
     Route: 064

REACTIONS (10)
  - Foetal disorder [Fatal]
  - Foetal renal impairment [Fatal]
  - Muscle contracture [Fatal]
  - Anuria [Fatal]
  - Oligohydramnios [Fatal]
  - Pulmonary hypoplasia [Fatal]
  - Congenital renal disorder [Fatal]
  - Death neonatal [Fatal]
  - Foetal exposure during pregnancy [Fatal]
  - Oliguria [Fatal]
